FAERS Safety Report 6125141-2 (Version None)
Quarter: 2009Q1

REPORT INFORMATION
  Report Type: 
  Country: None (occurrence: None)
  Receive Date: 20090317
  Receipt Date: 20090306
  Transmission Date: 20090719
  Serious: Yes (Other)
  Sender: FDA-Public Use
  Company Number: 2009010022

PATIENT
  Age: 76 Year
  Sex: Male
  Weight: 81.6475 kg

DRUGS (5)
  1. ASTELIN [Suspect]
     Indication: RHINITIS ALLERGIC
     Dosage: 1096 MCG (548 MCG, 2 IN 1 D) IN
     Route: 055
     Dates: start: 20080501, end: 20081201
  2. NORVASC [Concomitant]
  3. HYZAAR [Concomitant]
  4. ASPIRIN [Concomitant]
  5. HYTRIN [Concomitant]

REACTIONS (4)
  - CONTUSION [None]
  - ECCHYMOSIS [None]
  - HAEMORRHAGE [None]
  - MUSCLE SPASMS [None]
